FAERS Safety Report 6595220-4 (Version None)
Quarter: 2010Q1

REPORT INFORMATION
  Report Type: 
  Country: None (occurrence: None)
  Receive Date: 20100212
  Receipt Date: 20100128
  Transmission Date: 20100710
  Serious: No
  Sender: FDA-Public Use
  Company Number: 20097731

PATIENT
  Sex: Male

DRUGS (1)
  1. LIORESAL [Suspect]
     Indication: MUSCLE SPASTICITY
     Dosage: DAILY, INTRATHECAL
     Route: 037

REACTIONS (6)
  - DEVICE FAILURE [None]
  - DIZZINESS [None]
  - HAEMATOMA [None]
  - IMPLANT SITE EFFUSION [None]
  - OEDEMA [None]
  - SEROMA [None]
